FAERS Safety Report 6992013-0 (Version None)
Quarter: 2010Q3

REPORT INFORMATION
  Report Type: 
  Country: None (occurrence: None)
  Receive Date: 20100917
  Receipt Date: 20100909
  Transmission Date: 20110219
  Serious: Yes (Other)
  Sender: FDA-Public Use
  Company Number: BR-PFIZER INC-2010113984

PATIENT
  Age: 29 Year
  Sex: Female
  Weight: 63 kg

DRUGS (2)
  1. DEPO-PROVERA [Suspect]
     Indication: CONTRACEPTION
     Dosage: 150 MG, EVERY 3 MONTHS
     Route: 030
     Dates: start: 20100902
  2. TOLREST [Concomitant]
     Indication: DEPRESSION
     Dosage: UNK
     Dates: end: 20100905

REACTIONS (4)
  - BLOOD PRESSURE DECREASED [None]
  - CHILLS [None]
  - MENORRHAGIA [None]
  - NAUSEA [None]
